FAERS Safety Report 4861671-9 (Version None)
Quarter: 2005Q4

REPORT INFORMATION
  Report Type: 
  Country: None (occurrence: None)
  Receive Date: 20051130
  Receipt Date: 20050926
  Transmission Date: 20060501
  Serious: Yes (Hospitalization)
  Sender: FDA-Public Use
  Company Number: 2005112387

PATIENT
  Age: 54 Year
  Sex: Male
  Weight: 91.4 kg

DRUGS (66)
  1. ZYVOX [Suspect]
     Indication: ENTEROCOCCAL BACTERAEMIA
     Dosage: 1200 MG (600 MG, Q12H  INTERVAL: EVERY DAY), INTRAVENOUS
     Route: 042
     Dates: start: 20050728, end: 20050808
  2. SPIRONOLACTONE [Concomitant]
  3. TNF LUXIQ (TNF-ALPHA) [Concomitant]
  4. MORPHINE [Concomitant]
  5. LEVOTHYROXINE SODIUM [Concomitant]
  6. METOPROLOL SUCCINATE [Concomitant]
  7. PREDNISONE [Concomitant]
  8. SOIDUM CHLORIDE (SODIUM CHLORIDE) [Concomitant]
  9. IBUPROFEN/HYDRCHLORIDE  (IBUPROFEN) [Concomitant]
  10. ERYTHROMYCIN [Concomitant]
  11. LACTULOSE [Concomitant]
  12. FUROSEMIDE (FUROMESIDE) [Concomitant]
  13. POTASSIUM CHLORIDE [Concomitant]
  14. HYDROCORTISONE [Concomitant]
  15. INSULIN LISPRO (INSULIN LISPRO) [Concomitant]
  16. APAP/ISOMETHEPTENE/DICHHLORAL (ISOMETHEPTENE) [Concomitant]
  17. CEFAZOLIN [Concomitant]
  18. DEXTROSE 50% WATER (GLUCOSE) [Concomitant]
  19. MEPERIDINE (PETHIDINE) MEPERIDINE (PETHIDINE) [Concomitant]
  20. METOCLOPRAMIDE [Concomitant]
  21. MIDAZOLAM HCL [Concomitant]
  22. SODIUM CHLORIDE 0.9% [Concomitant]
  23. INSULIN GLARGINE (INSULIN GLARGINE) [Concomitant]
  24. PROPOFOL [Concomitant]
  25. DROPERIDOL [Concomitant]
  26. LIDOCAINE VISCOUS (LIDOCAINE HYDROCHLORIDE) [Concomitant]
  27. DOPAMINE HCL [Concomitant]
  28. PIPERCILLIN/TAZOBACTAM (PIPERACILLIN, TAZOBACTAM) [Concomitant]
  29. NALOXONE [Concomitant]
  30. DIAPER RASH OINTMENT (ALL OTHER THERAPEUTIC PRODUCTS) [Concomitant]
  31. SODIUM BICARBONATE IN PLASTIC CONTAINER [Concomitant]
  32. NEOMYCIN SULFATE [Concomitant]
  33. SODIUM CHLORIDE  + POTASSIUM CHLORIDE (POTASSIUM CHLORIDE) [Concomitant]
  34. NITROGLYCERIN [Concomitant]
  35. PEG-ELECTROLYTE SOLUTION (MACROGOL, POTASSIUM CHLORIDE, SODIUM BICARBO [Concomitant]
  36. THIAMINE HCL  + SODIUM CHLORIDE 0.9% (THIAMINE HYDROCHLORIDE) [Concomitant]
  37. MANNITOL [Concomitant]
  38. LACTOBACILLUS ACIDOPHILUS (LACTOBACILLUS ACIDOPHILUS) [Concomitant]
  39. MULTIVITAMIN (ASCORBIC ACID, ERGOCALCIFEROL, FOLIC ACID,  NICOTINAMIDE [Concomitant]
  40. PHENYLEPHRINE + DEXTROSE 5% WATER (PHENYLEPHRINE) [Concomitant]
  41. PHYTONADIONE [Concomitant]
  42. PANTOPRAZOLE SODIUM [Concomitant]
  43. TPN [Concomitant]
  44. HEPARIN [Concomitant]
  45. FLUCONAZOLE [Concomitant]
  46. ENOXAPARIN SODIUM [Concomitant]
  47. ALBUMIN (HUMAN) [Concomitant]
  48. OXYCODONE (OXYCODONE) [Concomitant]
  49. SORBITOL SOLUTION (SORBITOL) [Concomitant]
  50. BETAMETHASONE [Concomitant]
  51. SALINE/HEPARIN FLUSH (HEPARIN) [Concomitant]
  52. MAGNESIUM HYDROXIDE (MAGNESIUM HYDROXIDE) [Concomitant]
  53. VANCOMYCIN [Concomitant]
  54. ONDANSETRON [Concomitant]
  55. METHYLPREDNISILONE (METHYLPREDNISOLONE) [Concomitant]
  56. GENTAMICIN [Concomitant]
  57. IMIPENEM-CILASTATIN (CILASTATIN SODIUM, IMIPENEM) [Concomitant]
  58. METOLAZONE [Concomitant]
  59. NESIRITIDE + DEXTROSE 5% WATER (NESIRITIDE [Concomitant]
  60. MAGNESIUM SULFATE [Concomitant]
  61. D5-LR (ALL OTHER THERAPEUTIC PRODUCTS) [Concomitant]
  62. ALBUTEROL/ IPRATROPIUM (IPRATROPIUM) [Concomitant]
  63. LABETOLOL (LABETALOL) [Concomitant]
  64. LORAZEPAM [Concomitant]
  65. ENALIPRILAT (ENALAPRILAT) [Concomitant]
  66. DIAZEPAM [Concomitant]

REACTIONS (1)
  - THROMBOCYTOPENIA [None]
